FAERS Safety Report 8758610 (Version 2)
Quarter: 2012Q4

REPORT INFORMATION
  Report Type: 
  Country: DE (occurrence: DE)
  Receive Date: 20120829
  Receipt Date: 20121017
  Transmission Date: 20130627
  Serious: Yes (Other)
  Sender: FDA-Public Use
  Company Number: PHHY2012DE074035

PATIENT
  Age: 73 Year
  Sex: Female

DRUGS (2)
  1. ESTRAGEST TTS [Suspect]
     Indication: HORMONE REPLACEMENT THERAPY
     Dosage: One patch every three or four days
     Route: 062
  2. ESTRAGEST TTS [Suspect]
     Dosage: 1 DF, QW
     Route: 062

REACTIONS (4)
  - Atrial fibrillation [Unknown]
  - Atrial flutter [Unknown]
  - Heart rate increased [Unknown]
  - Heart rate irregular [Unknown]
